FAERS Safety Report 23949679 (Version 1)
Quarter: 2024Q2

REPORT INFORMATION
  Report Type: Spontaneous
  Country: US (occurrence: US)
  Receive Date: 20240607
  Receipt Date: 20240607
  Transmission Date: 20240716
  Serious: No
  Sender: FDA-Public Use
  Company Number: US-AVEVA-000668

PATIENT
  Age: 79 Year
  Sex: Female

DRUGS (1)
  1. NICOTINE [Suspect]
     Active Substance: NICOTINE
     Indication: Smoking cessation therapy
     Dosage: 1 DOSAGE FORM QD  (14 MILLIGRAM)
     Route: 062
     Dates: start: 20240428

REACTIONS (2)
  - Drug ineffective [Unknown]
  - Product adhesion issue [Unknown]
